FAERS Safety Report 4682304-0 (Version None)
Quarter: 2005Q2

REPORT INFORMATION
  Report Type: 
  Country: None (occurrence: None)
  Receive Date: 20050606
  Receipt Date: 20050523
  Transmission Date: 20051028
  Serious: Yes (Hospitalization)
  Sender: FDA-Public Use
  Company Number: GB-JNJFOC-20050600040

PATIENT
  Age: 84 Year

DRUGS (12)
  1. IBUPROFEN [Suspect]
     Indication: PAIN
     Route: 049
  2. FRUSEMIDE [Suspect]
     Indication: DRUG USE FOR UNKNOWN INDICATION
     Route: 049
  3. BENDROFLUAZIDE [Suspect]
     Indication: HYPERTENSION
     Route: 049
  4. ASPIRIN [Concomitant]
     Route: 049
  5. CALCICHEW-D3 [Concomitant]
     Route: 049
  6. CALCICHEW-D3 [Concomitant]
     Route: 049
  7. GABAPENTIN [Concomitant]
     Route: 049
  8. LOFEPRAMINE [Concomitant]
     Route: 049
  9. SALMETEROL [Concomitant]
     Route: 055
  10. BECLOMETHASONE DIPROPIONATE [Concomitant]
     Route: 055
  11. LANSOPRAZOLE [Concomitant]
     Route: 049
  12. BETAHISTINE [Concomitant]
     Route: 049

REACTIONS (2)
  - DEHYDRATION [None]
  - RENAL FAILURE ACUTE [None]
